FAERS Safety Report 4684524-8 (Version None)
Quarter: 2005Q2

REPORT INFORMATION
  Report Type: 
  Country: None (occurrence: None)
  Receive Date: 20050603
  Receipt Date: 20050521
  Transmission Date: 20051028
  Serious: Yes (Other)
  Sender: FDA-Public Use
  Company Number: 2005071719

PATIENT
  Age: 49 Year
  Sex: Female
  Weight: 95.2554 kg

DRUGS (9)
  1. BEXTRA [Suspect]
     Indication: ARTHRITIS
     Dosage: 10 MG (10 MG, 1 IN 1 D); ORAL
     Route: 048
     Dates: start: 20030715, end: 20050115
  2. BEXTRA [Suspect]
     Indication: INTERVERTEBRAL DISC DEGENERATION
     Dosage: 10 MG (10 MG, 1 IN 1 D); ORAL
     Route: 048
     Dates: start: 20030715, end: 20050115
  3. BEXTRA [Suspect]
     Indication: SURGERY
     Dosage: 10 MG (10 MG, 1 IN 1 D); ORAL
     Route: 048
     Dates: start: 20030715, end: 20050115
  4. AVALIDE [Concomitant]
  5. LEVOXYL [Concomitant]
  6. PRILOSEC [Concomitant]
  7. EFFEXOR XR [Concomitant]
  8. ESTRADIOL [Concomitant]
  9. ULTRACET [Concomitant]

REACTIONS (3)
  - CARBUNCLE [None]
  - HYPERSENSITIVITY [None]
  - PRURITUS [None]
